FAERS Safety Report 22205423 (Version 1)
Quarter: 2023Q2

REPORT INFORMATION
  Report Type: Spontaneous
  Country: TR (occurrence: TR)
  Receive Date: 20230413
  Receipt Date: 20230413
  Transmission Date: 20230721
  Serious: Yes (Hospitalization, Other)
  Sender: FDA-Public Use
  Company Number: TR-CELGENE-TUR-20210703603

PATIENT
  Age: 59 Year
  Sex: Male
  Weight: 66 kg

DRUGS (10)
  1. AZACITIDINE [Suspect]
     Active Substance: AZACITIDINE
     Indication: Myelodysplastic syndrome
     Dosage: 1 IN I DAY FOR 7 DAYS WITHIN FIRST 9 CALENDAR DAYS OF EACH 28 DAY CYCLE
     Route: 042
     Dates: start: 20210614, end: 20210713
  2. AZACITIDINE [Suspect]
     Active Substance: AZACITIDINE
     Route: 042
     Dates: start: 20210719
  3. VENETOCLAX [Suspect]
     Active Substance: VENETOCLAX
     Indication: Myelodysplastic syndrome
     Dosage: DAYS 1 -14 OF EACH 28-DAY CYCLE, EVERY 1 DAYS; DAYS 1 -14 OF EACH 28-DAY CYCLE, EVERY 1 DAYS
     Route: 048
     Dates: start: 20210614, end: 20210713
  4. VENETOCLAX [Suspect]
     Active Substance: VENETOCLAX
     Route: 048
     Dates: start: 20210717
  5. ALLOPURINOL [Concomitant]
     Active Substance: ALLOPURINOL
     Indication: Prophylaxis
     Dosage: 300 MILLIGRAM
     Route: 048
     Dates: start: 20210616
  6. LEVOFLOXACIN [Concomitant]
     Active Substance: LEVOFLOXACIN
     Indication: Infection prophylaxis
     Dosage: 500 MILLIGRAM
     Route: 048
     Dates: start: 20210616
  7. FLUCONAZOLE [Concomitant]
     Active Substance: FLUCONAZOLE
     Indication: Prophylaxis
     Dosage: 200 MILLIGRAM
     Route: 048
     Dates: start: 20210616
  8. FRAVEN [Concomitant]
     Indication: Prophylaxis
     Dosage: 30 MIU
     Route: 030
     Dates: start: 20210628
  9. ONDANSETRON HYDROCHLORIDE [Concomitant]
     Active Substance: ONDANSETRON HYDROCHLORIDE
     Indication: Prophylaxis of nausea and vomiting
     Route: 048
     Dates: start: 20210614, end: 20210621
  10. ONDANSETRON HYDROCHLORIDE [Concomitant]
     Active Substance: ONDANSETRON HYDROCHLORIDE
     Indication: Prophylaxis of nausea and vomiting
     Route: 048
     Dates: start: 20210712, end: 20210714

REACTIONS (6)
  - Febrile neutropenia [Recovered/Resolved]
  - Fall [Unknown]
  - Loss of consciousness [Unknown]
  - Ear pain [Unknown]
  - Diarrhoea [Unknown]
  - Rash [Unknown]

NARRATIVE: CASE EVENT DATE: 20210714
